FAERS Safety Report 7154082-7 (Version None)
Quarter: 2010Q4

REPORT INFORMATION
  Report Type: 
  Country: None (occurrence: None)
  Receive Date: 20101124
  Receipt Date: 20101115
  Transmission Date: 20110411
  Serious: Yes (Death, Other)
  Sender: FDA-Public Use
  Company Number: DSJ-2010-20413

PATIENT
  Age: 82 Year
  Sex: Male

DRUGS (8)
  1. OLMESARTAN MEDOXOMIL [Suspect]
     Indication: HYPERTENSION
     Dosage: 20 MG,PER ORAL
     Route: 048
     Dates: start: 20091111
  2. CALBLOCK (AZELNIDIPINE) (TABLET) (AZELNIDIPINE) [Suspect]
     Indication: HYPERTENSION
     Dosage: 16 MG,PER ORAL
     Route: 048
     Dates: start: 20091111
  3. CARVEDILOL [Suspect]
     Indication: CARDIAC FAILURE
     Dosage: 2.5 MG,PER ORAL
     Route: 048
  4. DORNER (BERAPROST SODIUM) (BERAPROST SODIUM) [Concomitant]
  5. ASPIRIN [Concomitant]
  6. WARFARIN SODIUM [Concomitant]
  7. LIVALO (ITAVASTATIN CALCIUM) (ITAVASTATIN CALCIUM) [Concomitant]
  8. LUPRAC (TORASEMIDE) (TORASEMIDE) [Concomitant]

REACTIONS (2)
  - CEREBELLAR HAEMORRHAGE [None]
  - CEREBRAL ARTERY EMBOLISM [None]
